FAERS Safety Report 5863289-8 (Version None)
Quarter: 2008Q3

REPORT INFORMATION
  Report Type: 
  Country: None (occurrence: None)
  Receive Date: 20080828
  Receipt Date: 20080819
  Transmission Date: 20090109
  Serious: Yes (Other)
  Sender: FDA-Public Use
  Company Number: GB-PFIZER INC-2008055042

PATIENT
  Sex: Female
  Weight: 68 kg

DRUGS (11)
  1. CHANTIX [Suspect]
     Indication: SMOKING CESSATION THERAPY
     Route: 048
     Dates: start: 20080117, end: 20080203
  2. SPASMONAL [Concomitant]
     Route: 048
  3. OMEPRAZOLE [Concomitant]
  4. PREMARIN [Concomitant]
  5. FERROUS SULFATE TAB [Concomitant]
  6. BUSCOPAN [Concomitant]
  7. RISPERIDONE [Concomitant]
  8. PRIADEL [Concomitant]
  9. PROCYCLIDINE HYDROCHLORIDE 2MG TAB [Concomitant]
  10. ALL OTHER THERAPEUTIC PRODUCTS [Concomitant]
  11. AMITRIPTYLINE HCL [Concomitant]

REACTIONS (1)
  - ABNORMAL BEHAVIOUR [None]
